FAERS Safety Report 5021806-4 (Version None)
Quarter: 2006Q2

REPORT INFORMATION
  Report Type: 
  Country: None (occurrence: None)
  Receive Date: 20060605
  Receipt Date: 20060518
  Transmission Date: 20061013
  Serious: Yes (Death)
  Sender: FDA-Public Use
  Company Number: US200605004841

PATIENT
  Sex: 0

DRUGS (1)
  1. ZYPREXA [Suspect]
     Dates: start: 20000101, end: 20030601

REACTIONS (3)
  - CARDIO-RESPIRATORY ARREST [None]
  - DEMENTIA ALZHEIMER'S TYPE [None]
  - HYPOTENSION [None]
